FAERS Safety Report 7339492-7 (Version None)
Quarter: 2011Q1

REPORT INFORMATION
  Report Type: 
  Country: None (occurrence: None)
  Receive Date: 20110308
  Receipt Date: 20110120
  Transmission Date: 20110831
  Serious: No
  Sender: FDA-Public Use
  Company Number: US-AMGEN-USASP2011003819

PATIENT
  Age: 65 Year
  Sex: Female

DRUGS (8)
  1. MUCINEX [Concomitant]
  2. PROLIA [Suspect]
     Indication: OSTEOPOROSIS POSTMENOPAUSAL
     Dosage: UNK UNK, Q6MO
     Dates: start: 20101115, end: 20110120
  3. ZOLOFT [Concomitant]
  4. VITAMIN A [Concomitant]
  5. ALLEGRA [Concomitant]
  6. ADVAIR [Concomitant]
  7. GLUCOSAMINE [Concomitant]
  8. CALCIUM [Concomitant]

REACTIONS (3)
  - MUSCULOSKELETAL STIFFNESS [None]
  - MASTITIS [None]
  - SKIN INFECTION [None]
